FAERS Safety Report 5412692-9 (Version None)
Quarter: 2007Q3

REPORT INFORMATION
  Report Type: 
  Country: None (occurrence: None)
  Receive Date: 20070813
  Receipt Date: 20070803
  Transmission Date: 20080115
  Serious: Yes (Other)
  Sender: FDA-Public Use
  Company Number: US-SHR-US-2005-016006

PATIENT
  Age: 21 Year
  Sex: Female
  Weight: 54 kg

DRUGS (3)
  1. YASMIN [Suspect]
     Dosage: 1 TAB(S), 1X/DAY
     Route: 048
     Dates: start: 20030101, end: 20070727
  2. TEGRETOL [Concomitant]
     Dosage: 600 MG, 2X/DAY
     Route: 048
  3. MULTIVIT [Concomitant]
     Dosage: 1 DF, 1X/DAY
     Route: 048

REACTIONS (3)
  - AMENORRHOEA [None]
  - GLUCOSE TOLERANCE IMPAIRED [None]
  - SKIN CANCER [None]
